FAERS Safety Report 24613332 (Version 1)
Quarter: 2024Q4

REPORT INFORMATION
  Report Type: Spontaneous
  Country: US (occurrence: US)
  Receive Date: 20241113
  Receipt Date: 20241113
  Transmission Date: 20250114
  Serious: No
  Sender: IPSEN BIOPHARMACEUTICALS, INC.
  Company Number: US-IPSEN Group, Research and Development-2024-22781

PATIENT
  Age: 56 Year
  Sex: Female
  Weight: 75.2 kg

DRUGS (3)
  1. IQIRVO [Suspect]
     Active Substance: ELAFIBRANOR
     Indication: Primary biliary cholangitis
     Route: 048
     Dates: start: 20240924
  2. ADVIL [Concomitant]
     Active Substance: IBUPROFEN
  3. URSODIOL [Concomitant]
     Active Substance: URSODIOL

REACTIONS (2)
  - Hepatic pain [Recovered/Resolved]
  - Pain [Recovered/Resolved]

NARRATIVE: CASE EVENT DATE: 20240926
